FAERS Safety Report 8484581-7 (Version None)
Quarter: 2012Q3

REPORT INFORMATION
  Report Type: 
  Country: None (occurrence: None)
  Receive Date: 20120703
  Receipt Date: 20120627
  Transmission Date: 20120928
  Serious: Yes (Hospitalization)
  Sender: FDA-Public Use
  Company Number: CH-SANOFI-AVENTIS-2011SA082120

PATIENT
  Age: 64 Year
  Sex: Male
  Weight: 67 kg

DRUGS (8)
  1. DE-URSIL [Concomitant]
  2. ARAVA [Suspect]
     Route: 048
     Dates: end: 20111001
  3. PREDNISONE TAB [Concomitant]
     Dates: end: 20111001
  4. CANDESARTAN CILEXETIL AND HYDROCHLOROTHIAZIDE [Concomitant]
  5. ARAVA [Suspect]
     Route: 048
     Dates: start: 20060918
  6. MABTHERA [Concomitant]
     Dosage: 1 PER 4 TOTAL
     Dates: start: 20080101, end: 20101029
  7. PANTOPRAZOLE [Concomitant]
  8. ZOLPIDEM [Concomitant]

REACTIONS (3)
  - PERICARDIAL EFFUSION [None]
  - EOSINOPHILIA [None]
  - PLEURAL EFFUSION [None]
